FAERS Safety Report 19487494 (Version 1)
Quarter: 2021Q3

REPORT INFORMATION
  Report Type: Other
  Country: US (occurrence: US)
  Receive Date: 20210702
  Receipt Date: 20210702
  Transmission Date: 20211014
  Serious: Yes (Hospitalization, Other)
  Sender: FDA-Public Use
  Company Number: US-NOVA LABORATORIES LIMITED-2113421

PATIENT
  Age: 44 Year
  Sex: Male

DRUGS (4)
  1. PURIXAN [Suspect]
     Active Substance: MERCAPTOPURINE
     Indication: ACUTE LYMPHOCYTIC LEUKAEMIA
  2. PREDNISONE. [Suspect]
     Active Substance: PREDNISONE
  3. VINCRISTINE [Suspect]
     Active Substance: VINCRISTINE
  4. METHOTREXATE. [Suspect]
     Active Substance: METHOTREXATE

REACTIONS (1)
  - COVID-19 [Recovering/Resolving]
